FAERS Safety Report 18757831 (Version 2)
Quarter: 2021Q1

REPORT INFORMATION
  Report Type: Spontaneous
  Country: BR (occurrence: BR)
  Receive Date: 20210119
  Receipt Date: 20210125
  Transmission Date: 20210419
  Serious: Yes (Other)
  Sender: FDA-Public Use
  Company Number: BR-IPSEN BIOPHARMACEUTICALS, INC.-2021-01058

PATIENT
  Sex: Female

DRUGS (1)
  1. SOMATULINE AUTOGEL [Suspect]
     Active Substance: LANREOTIDE ACETATE
     Indication: PRODUCT USED FOR UNKNOWN INDICATION
     Dosage: NOT REPORTED
     Route: 065

REACTIONS (2)
  - Drug ineffective [Unknown]
  - Neoplasm progression [Unknown]
